FAERS Safety Report 20975716 (Version 1)
Quarter: 2022Q2

REPORT INFORMATION
  Report Type: Report from Study
  Country: FR (occurrence: FR)
  Receive Date: 20220617
  Receipt Date: 20220617
  Transmission Date: 20220721
  Serious: Yes (Other)
  Sender: FDA-Public Use
  Company Number: FR-SUN PHARMACEUTICAL INDUSTRIES LTD-2022RR-341163

PATIENT
  Age: 41 Year
  Sex: Female

DRUGS (7)
  1. ESCITALOPRAM [Suspect]
     Active Substance: ESCITALOPRAM OXALATE
     Indication: Antipsychotic therapy
     Dosage: UNK
     Route: 065
  2. OXAZEPAM [Suspect]
     Active Substance: OXAZEPAM
     Indication: Antipsychotic therapy
     Dosage: 212 NG/ML
     Route: 065
  3. CITALOPRAM [Suspect]
     Active Substance: CITALOPRAM HYDROBROMIDE
     Indication: Antipsychotic therapy
     Dosage: 189 NG/ML
     Route: 065
  4. SULPIRIDE [Suspect]
     Active Substance: SULPIRIDE
     Indication: Antipsychotic therapy
     Dosage: UNK
     Route: 065
  5. DESMETHYLCITALOPRAM [Suspect]
     Active Substance: DESMETHYLCITALOPRAM
     Indication: Antipsychotic therapy
     Dosage: 129 NG/ML
     Route: 065
  6. OLANZAPINE [Concomitant]
     Active Substance: OLANZAPINE
     Indication: Antipsychotic therapy
     Dosage: 83.2 NG/ML
     Route: 065
  7. desmethylolanzapine [Concomitant]
     Indication: Antipsychotic therapy
     Dosage: 61.4 NG/ML
     Route: 065

REACTIONS (1)
  - Sudden cardiac death [Unknown]
